FAERS Safety Report 9490201 (Version 3)
Quarter: 2014Q1

REPORT INFORMATION
  Report Type: Report from Study
  Country: AU (occurrence: AU)
  Receive Date: 20130830
  Receipt Date: 20140227
  Transmission Date: 20141002
  Serious: Yes (Disabling)
  Sender: FDA-Public Use
  Company Number: AU-ROCHE-1235356

PATIENT
  Age: 82 Year
  Sex: Female

DRUGS (2)
  1. ACTEMRA [Suspect]
     Indication: RHEUMATOID ARTHRITIS
     Dosage: MONTHLY
     Route: 042
     Dates: start: 20130507, end: 20131022
  2. PLAVIX [Concomitant]
     Route: 048

REACTIONS (4)
  - Fatigue [Not Recovered/Not Resolved]
  - Head discomfort [Not Recovered/Not Resolved]
  - Haematoma [Not Recovered/Not Resolved]
  - Headache [Not Recovered/Not Resolved]
